FAERS Safety Report 17757895 (Version 12)
Quarter: 2022Q1

REPORT INFORMATION
  Report Type: Report from Study
  Country: FR (occurrence: FR)
  Receive Date: 20200507
  Receipt Date: 20220218
  Transmission Date: 20220423
  Serious: Yes (Other)
  Sender: FDA-Public Use
  Company Number: FR-CELGENE-FRA-20200408841

PATIENT
  Age: 66 Year
  Sex: Female
  Weight: 104 kg

DRUGS (17)
  1. ISTODAX [Suspect]
     Active Substance: ROMIDEPSIN
     Indication: Cutaneous T-cell lymphoma
     Dosage: 14 MILLIGRAM/SQ. METER
     Route: 041
     Dates: start: 20200120
  2. ISTODAX [Suspect]
     Active Substance: ROMIDEPSIN
     Indication: Haematotoxicity
     Dosage: 10.5 MILLIGRAM/SQ. METER
     Route: 041
     Dates: start: 20200217
  3. ISTODAX [Suspect]
     Active Substance: ROMIDEPSIN
     Dosage: 7 MILLIGRAM/SQ. METER
     Route: 041
     Dates: start: 20200312
  4. ISTODAX [Suspect]
     Active Substance: ROMIDEPSIN
     Dosage: 5 MILLIGRAM/SQ. METER
     Route: 041
     Dates: start: 20200320
  5. ISTODAX [Suspect]
     Active Substance: ROMIDEPSIN
     Dosage: 7 MILLIGRAM/SQ. METER
     Route: 041
     Dates: start: 20200403
  6. ISTODAX [Suspect]
     Active Substance: ROMIDEPSIN
     Dosage: 7 MILLIGRAM/SQ. METER
     Route: 041
     Dates: start: 20200417
  7. ISTODAX [Suspect]
     Active Substance: ROMIDEPSIN
     Dosage: 7 MILLIGRAM/SQ. METER
     Route: 041
     Dates: start: 20200430
  8. ISTODAX [Suspect]
     Active Substance: ROMIDEPSIN
     Dosage: 7 MILLIGRAM/SQ. METER
     Route: 041
     Dates: start: 20200930
  9. ISTODAX [Suspect]
     Active Substance: ROMIDEPSIN
     Dosage: 7 MILLIGRAM/SQ. METER
     Route: 041
     Dates: start: 20201028
  10. ISTODAX [Suspect]
     Active Substance: ROMIDEPSIN
     Dosage: 7 MILLIGRAM/SQ. METER
     Route: 041
     Dates: start: 20201112
  11. ISTODAX [Suspect]
     Active Substance: ROMIDEPSIN
     Dosage: 7 MILLIGRAM/SQ. METER
     Route: 041
     Dates: start: 20210107
  12. ISTODAX [Suspect]
     Active Substance: ROMIDEPSIN
     Dosage: 7 MILLIGRAM/SQ. METER
     Route: 041
     Dates: start: 20210121
  13. ISTODAX [Suspect]
     Active Substance: ROMIDEPSIN
     Dosage: 7 MILLIGRAM/SQ. METER
     Route: 041
     Dates: start: 20210214
  14. ISTODAX [Suspect]
     Active Substance: ROMIDEPSIN
     Dosage: 7 MILLIGRAM/SQ. METER
     Route: 041
     Dates: start: 20210428
  15. ISTODAX [Suspect]
     Active Substance: ROMIDEPSIN
     Dosage: 7 MILLIGRAM/SQ. METER
     Route: 041
     Dates: start: 20210511
  16. ISTODAX [Suspect]
     Active Substance: ROMIDEPSIN
     Dosage: 7 MG/SQ. METER
     Route: 041
  17. ISTODAX [Suspect]
     Active Substance: ROMIDEPSIN
     Dosage: 7 MG/SQ.METER
     Route: 041

REACTIONS (4)
  - Hepatic failure [Unknown]
  - Thrombocytopenia [Recovered/Resolved]
  - Haematotoxicity [Recovered/Resolved]
  - Blood magnesium abnormal [Unknown]

NARRATIVE: CASE EVENT DATE: 20200201
